FAERS Safety Report 11789684 (Version 1)
Quarter: 2015Q4

REPORT INFORMATION
  Report Type: Spontaneous
  Country: US (occurrence: US)
  Receive Date: 20151201
  Receipt Date: 20151201
  Transmission Date: 20160305
  Serious: No
  Sender: FDA-Public Use
  Company Number: JP-WARNER CHILCOTT 2014-002348

PATIENT
  Sex: Female

DRUGS (1)
  1. LO LOESTRIN FE [Suspect]
     Active Substance: ETHINYL ESTRADIOL\NORETHINDRONE ACETATE
     Route: 048
     Dates: start: 20140702

REACTIONS (3)
  - Amenorrhoea [Unknown]
  - Metrorrhagia [Unknown]
  - Hypomenorrhoea [Unknown]
